FAERS Safety Report 21853186 (Version 1)
Quarter: 2023Q1

REPORT INFORMATION
  Report Type: Report from Study
  Country: US (occurrence: US)
  Receive Date: 20230112
  Receipt Date: 20230112
  Transmission Date: 20230418
  Serious: No
  Sender: FDA-Public Use
  Company Number: US-ABBVIE-4234033

PATIENT
  Age: 27 Year
  Sex: Female

DRUGS (2)
  1. SKYRIZI [Suspect]
     Active Substance: RISANKIZUMAB-RZAA
     Indication: Psoriasis
     Dosage: LAST ADMINISTRATION DATE WAS AUG 2022
     Route: 058
     Dates: start: 20220801
  2. SKYRIZI [Suspect]
     Active Substance: RISANKIZUMAB-RZAA
     Dosage: FIRST ADMINISTRATION DATE WAS 2022
     Route: 058

REACTIONS (9)
  - Illness [Unknown]
  - Rhinorrhoea [Not Recovered/Not Resolved]
  - Chills [Unknown]
  - Sneezing [Unknown]
  - Tension headache [Unknown]
  - Cough [Not Recovered/Not Resolved]
  - Burning sensation [Unknown]
  - Incorrect product administration duration [Unknown]
  - Gastroenteritis viral [Recovered/Resolved]

NARRATIVE: CASE EVENT DATE: 20221201
